FAERS Safety Report 7443369-6 (Version None)
Quarter: 2011Q2

REPORT INFORMATION
  Report Type: 
  Country: None (occurrence: None)
  Receive Date: 20110428
  Receipt Date: 20110425
  Transmission Date: 20111010
  Serious: Yes (Disabling)
  Sender: FDA-Public Use
  Company Number: US-ELI_LILLY_AND_COMPANY-US201104007215

PATIENT
  Sex: Female

DRUGS (6)
  1. HUMALOG MIX 75/25 [Suspect]
     Dosage: 30 U, EACH EVENING
     Dates: start: 20110413
  2. HUMALOG MIX 75/25 [Suspect]
     Dosage: 50 U, EACH MORNING
     Dates: start: 20110413
  3. HUMALOG MIX 75/25 [Suspect]
     Dosage: 30 U, EACH EVENING
     Dates: start: 20110413
  4. BACTRIM [Concomitant]
     Indication: URINARY TRACT INFECTION
     Dosage: UNK
     Dates: start: 20110418, end: 20110424
  5. HUMALOG MIX 75/25 [Suspect]
     Indication: TYPE 2 DIABETES MELLITUS
     Dosage: 50 U, EACH MORNING
     Dates: start: 20110413
  6. LANTUS [Concomitant]
     Dosage: UNK

REACTIONS (4)
  - BLOOD GLUCOSE DECREASED [None]
  - BLOOD GLUCOSE INCREASED [None]
  - DECREASED APPETITE [None]
  - MALAISE [None]
